FAERS Safety Report 8932182 (Version 1)
Quarter: 2012Q4

REPORT INFORMATION
  Report Type: 
  Country: US (occurrence: US)
  Receive Date: 20121128
  Receipt Date: 20121128
  Transmission Date: 20130627
  Serious: No
  Sender: FDA-Public Use
  Company Number: US-009507513-1211USA010538

PATIENT
  Sex: Female
  Weight: 54.88 kg

DRUGS (4)
  1. VICTRELIS [Suspect]
     Dosage: Take 4 Capsules By Mouth Three Times A Day
     Route: 048
  2. RIBAVIRIN [Suspect]
  3. PEGASYS [Suspect]
     Dosage: 180 Mcg/M
  4. LUNESTA [Concomitant]

REACTIONS (3)
  - Burning sensation [Unknown]
  - Weight decreased [Unknown]
  - Haemoglobin decreased [Unknown]
